FAERS Safety Report 16891969 (Version 1)
Quarter: 2019Q4

REPORT INFORMATION
  Report Type: Spontaneous
  Country: US (occurrence: US)
  Receive Date: 20191007
  Receipt Date: 20191007
  Transmission Date: 20200122
  Serious: Yes (Other)
  Sender: FDA-Public Use
  Company Number: US-ENDO PHARMACEUTICALS INC-2019-106681

PATIENT
  Sex: Male

DRUGS (1)
  1. FLUTAMIDE. [Suspect]
     Active Substance: FLUTAMIDE
     Indication: PROSTATE CANCER METASTATIC
     Dosage: 125 MG, UNKNOWN
     Route: 065

REACTIONS (1)
  - Prostatic specific antigen increased [Unknown]
